FAERS Safety Report 12308708 (Version 1)
Quarter: 2016Q2

REPORT INFORMATION
  Report Type: Spontaneous
  Country: DE (occurrence: DE)
  Receive Date: 20160427
  Receipt Date: 20160427
  Transmission Date: 20160815
  Serious: Yes (Other)
  Sender: FDA-Public Use
  Company Number: DE-AMGEN-DEUSP2016050393

PATIENT
  Sex: Male

DRUGS (6)
  1. MOVICOL [Concomitant]
     Active Substance: POLYETHYLENE GLYCOL 3350\POTASSIUM CHLORIDE\SODIUM BICARBONATE\SODIUM CHLORIDE
     Dosage: (100); UNK
  2. PROLIA [Suspect]
     Active Substance: DENOSUMAB
     Indication: OSTEOPOROSIS
     Dosage: UNK
     Route: 065
     Dates: start: 20140813
  3. VALSARTAN. [Concomitant]
     Active Substance: VALSARTAN
     Dosage: 160/12.5 (100) ,UNK
  4. METOPROLOL. [Concomitant]
     Active Substance: METOPROLOL
     Dosage: 47.5 (100), UNK
  5. MUCOFALK [Concomitant]
     Dosage: (001), UNK
  6. DEKRISTOL [Concomitant]
     Active Substance: CHOLECALCIFEROL
     Dosage: 20000 UNK, Q2WK

REACTIONS (2)
  - Blood pressure increased [Not Recovered/Not Resolved]
  - Cerebral haemorrhage [Unknown]

NARRATIVE: CASE EVENT DATE: 201409
